FAERS Safety Report 5094712-7 (Version None)
Quarter: 2006Q3

REPORT INFORMATION
  Report Type: 
  Country: None (occurrence: None)
  Receive Date: 20060731
  Receipt Date: 20060411
  Transmission Date: 20061208
  Serious: No
  Sender: FDA-Public Use
  Company Number: 2006PV011942

PATIENT
  Age: 40 Year
  Sex: Male

DRUGS (1)
  1. BYETTA [Suspect]
     Dosage: 5 MCG;SC
     Route: 058

REACTIONS (2)
  - CHILLS [None]
  - TEMPERATURE INTOLERANCE [None]
